FAERS Safety Report 9591963 (Version 1)
Quarter: 2013Q4

REPORT INFORMATION
  Report Type: Report from Study
  Country: DK (occurrence: DK)
  Receive Date: 20131004
  Receipt Date: 20131004
  Transmission Date: 20140711
  Serious: Yes (Hospitalization, Other)
  Sender: FDA-Public Use
  Company Number: DK-ROCHE-1281896

PATIENT
  Sex: Female

DRUGS (1)
  1. TRASTUZUMAB EMTANSINE [Suspect]
     Indication: HER-2 POSITIVE BREAST CANCER
     Dosage: 5 TREATMENT COURCES AT THE TIME OF THE REPORT
     Route: 065
     Dates: start: 20130607

REACTIONS (6)
  - Pyrexia [Unknown]
  - Empyema [Unknown]
  - Metastases to skin [Unknown]
  - Thrombocytopenia [Recovered/Resolved]
  - Contusion [Unknown]
  - Dysgeusia [Unknown]
